FAERS Safety Report 23341639 (Version 1)
Quarter: 2023Q4

REPORT INFORMATION
  Report Type: Spontaneous
  Country: ES (occurrence: ES)
  Receive Date: 20231227
  Receipt Date: 20231227
  Transmission Date: 20240110
  Serious: Yes (Hospitalization)
  Sender: FDA-Public Use
  Company Number: None

PATIENT
  Age: 92 Year
  Sex: Male
  Weight: 58 kg

DRUGS (1)
  1. SACUBITRIL\VALSARTAN [Suspect]
     Active Substance: SACUBITRIL\VALSARTAN
     Indication: Cardiac failure congestive
     Dosage: 0.5 DOSAGE FORM, Q12H (24/26 MG: MEDIO COMPRIMIDO CADA 12 HORAS)
     Route: 048
     Dates: start: 20230623, end: 20231121

REACTIONS (4)
  - Cardiac failure acute [Recovering/Resolving]
  - Hypotension [Recovered/Resolved]
  - Renal failure [Recovering/Resolving]
  - Condition aggravated [Recovered/Resolved]

NARRATIVE: CASE EVENT DATE: 20230626
